FAERS Safety Report 9484848 (Version 1)
Quarter: 2013Q3

REPORT INFORMATION
  Report Type: Spontaneous
  Country: US (occurrence: US)
  Receive Date: 20130828
  Receipt Date: 20130828
  Transmission Date: 20140515
  Serious: Yes (Hospitalization)
  Sender: FDA-Public Use
  Company Number: US-AMGEN-USASP2012045766

PATIENT
  Age: 78 Year
  Sex: Female

DRUGS (1)
  1. ENBREL [Suspect]
     Indication: RHEUMATOID ARTHRITIS
     Dosage: 50 MG, QWK
     Route: 065
     Dates: start: 20120406, end: 20120707

REACTIONS (6)
  - Atrial fibrillation [Unknown]
  - Confusional state [Unknown]
  - Dehydration [Unknown]
  - Renal failure [Unknown]
  - Convulsion [Unknown]
  - Cardiac failure congestive [Unknown]
